FAERS Safety Report 4520241-2 (Version None)
Quarter: 2004Q4

REPORT INFORMATION
  Report Type: 
  Country: None (occurrence: None)
  Receive Date: 20041025
  Receipt Date: 20040706
  Transmission Date: 20050328
  Serious: Yes (Hospitalization)
  Sender: FDA-Public Use
  Company Number: USA040771957

PATIENT
  Age: 75 Year
  Sex: Female

DRUGS (1)
  1. SYMBYAX [Suspect]
     Dates: start: 20040520

REACTIONS (1)
  - DIABETIC COMA [None]
